FAERS Safety Report 10786345 (Version 2)
Quarter: 2015Q1

REPORT INFORMATION
  Report Type: Spontaneous
  Country: IN (occurrence: IN)
  Receive Date: 20150211
  Receipt Date: 20150226
  Transmission Date: 20150721
  Serious: Yes (Other)
  Sender: FDA-Public Use
  Company Number: IN-ABBVIE-15P-078-1343072-00

PATIENT
  Age: 30 Year
  Sex: Male

DRUGS (3)
  1. CLOBAZAM [Concomitant]
     Active Substance: CLOBAZAM
     Indication: SEIZURE
     Route: 065
  2. VALPROATE SODIUM. [Suspect]
     Active Substance: VALPROATE SODIUM
     Indication: SEIZURE
     Route: 065
  3. PHENYTOIN. [Concomitant]
     Active Substance: PHENYTOIN
     Indication: SEIZURE
     Route: 065

REACTIONS (10)
  - Mental impairment [Unknown]
  - Irritability [Unknown]
  - Cognitive disorder [Unknown]
  - Anxiety [Unknown]
  - Lethargy [Unknown]
  - Hyperammonaemia [Unknown]
  - Depression [Unknown]
  - Yawning [Unknown]
  - Memory impairment [Unknown]
  - Dyskinesia [Unknown]
